FAERS Safety Report 5144975-4 (Version None)
Quarter: 2006Q4

REPORT INFORMATION
  Report Type: 
  Country: None (occurrence: None)
  Receive Date: 20061107
  Receipt Date: 20060918
  Transmission Date: 20070319
  Serious: Yes (Hospitalization)
  Sender: FDA-Public Use
  Company Number: FR-BRACCO-BRO-010565

PATIENT
  Age: 78 Year
  Sex: Male

DRUGS (4)
  1. MULTIHANCE [Suspect]
     Route: 042
     Dates: start: 20060914, end: 20060914
  2. MULTIHANCE [Suspect]
     Indication: NUCLEAR MAGNETIC RESONANCE IMAGING BRAIN
     Route: 042
     Dates: start: 20060914, end: 20060914
  3. DIURETICS [Concomitant]
     Route: 050
  4. ANZYME CONVERTING INHIBITORS [Concomitant]
     Route: 050

REACTIONS (6)
  - BRADYCARDIA [None]
  - GENERALISED ERYTHEMA [None]
  - HYPERHIDROSIS [None]
  - HYPOTENSION [None]
  - MALAISE [None]
  - VOMITING [None]
